FAERS Safety Report 9355408 (Version 1)
Quarter: 2013Q2

REPORT INFORMATION
  Report Type: Spontaneous
  Country: JP (occurrence: JP)
  Receive Date: 20130619
  Receipt Date: 20130619
  Transmission Date: 20140414
  Serious: Yes (Other)
  Sender: FDA-Public Use
  Company Number: JP-JNJFOC-20130609098

PATIENT
  Age: 85 Year
  Sex: Male

DRUGS (3)
  1. REMINYL [Suspect]
     Indication: DEMENTIA
     Route: 048
  2. REMINYL [Suspect]
     Indication: DEMENTIA
     Route: 048
  3. REMINYL [Suspect]
     Indication: DEMENTIA
     Route: 048
     Dates: start: 20111025

REACTIONS (3)
  - Hallucination [Unknown]
  - Spinal compression fracture [Unknown]
  - Dizziness [Unknown]
